FAERS Safety Report 9484292 (Version 2)
Quarter: 2013Q3

REPORT INFORMATION
  Report Type: Spontaneous
  Country: US (occurrence: US)
  Receive Date: 20130828
  Receipt Date: 20130828
  Transmission Date: 20140515
  Serious: Yes (Hospitalization, Other)
  Sender: FDA-Public Use
  Company Number: US-AMGEN-KDL379321

PATIENT
  Age: 31 Year
  Sex: Female
  Weight: 75.4 kg

DRUGS (5)
  1. ENBREL [Suspect]
     Indication: PSORIATIC ARTHROPATHY
     Dosage: 50 MG, QWK
     Route: 058
     Dates: start: 20061001
  2. ENBREL [Suspect]
     Indication: PSORIASIS
  3. PRENATAL VITAMINS [Concomitant]
     Dosage: UNK UNK, QD
     Dates: start: 200807, end: 200912
  4. ASCORBIC ACID [Concomitant]
     Dosage: 1000 MG, PRN
     Dates: start: 200807, end: 200910
  5. INFLUENZA VACCINE [Concomitant]

REACTIONS (5)
  - Labour complication [Recovered/Resolved]
  - Foetal malposition [Recovered/Resolved]
  - Cephalo-pelvic disproportion [Recovered/Resolved]
  - Streptococcus test positive [Unknown]
  - Psoriatic arthropathy [Not Recovered/Not Resolved]
